FAERS Safety Report 4529679-0 (Version None)
Quarter: 2004Q4

REPORT INFORMATION
  Report Type: 
  Country: None (occurrence: None)
  Receive Date: 20041202
  Receipt Date: 20040820
  Transmission Date: 20050328
  Serious: No
  Sender: FDA-Public Use
  Company Number: 200417959BWH

PATIENT
  Age: 50 Year
  Sex: Male
  Weight: 95.2554 kg

DRUGS (6)
  1. LEVITRA [Suspect]
     Indication: ERECTILE DYSFUNCTION
     Dosage: ORAL
     Route: 048
     Dates: start: 20040520
  2. NARCOTIC THERAPY [Concomitant]
  3. VIAGRA [Concomitant]
  4. NEXIUM [Concomitant]
  5. NUPRIN [Concomitant]
  6. TESTIM [Concomitant]

REACTIONS (3)
  - MIGRAINE [None]
  - MIGRAINE WITH AURA [None]
  - PAIN [None]
